FAERS Safety Report 26094302 (Version 1)
Quarter: 2025Q4

REPORT INFORMATION
  Report Type: Spontaneous
  Country: CN (occurrence: CN)
  Receive Date: 20251126
  Receipt Date: 20251126
  Transmission Date: 20260118
  Serious: Yes (Other)
  Sender: PFIZER
  Company Number: CN-PFIZER INC-PV202500136385

PATIENT
  Age: 52 Year
  Sex: Male

DRUGS (4)
  1. LORLATINIB [Suspect]
     Active Substance: LORLATINIB
     Indication: Lung neoplasm malignant
     Dosage: 100 MG, 1X/DAY
     Route: 048
     Dates: start: 20250507, end: 20251103
  2. ICOTINIB HYDROCHLORIDE [Concomitant]
     Active Substance: ICOTINIB HYDROCHLORIDE
     Indication: Lung neoplasm malignant
     Dosage: 125 MG, 3X/DAY
     Route: 048
     Dates: start: 20251021, end: 20251118
  3. OSIMERTINIB [Concomitant]
     Active Substance: OSIMERTINIB
     Indication: Lung neoplasm malignant
     Dosage: UNK
     Dates: start: 20250507, end: 2025
  4. FIRMONERTINIB MESYLATE [Concomitant]
     Active Substance: FIRMONERTINIB MESYLATE
     Indication: Lung neoplasm malignant
     Dosage: 240 MG, 1X/DAY
     Dates: start: 2025, end: 20251021

REACTIONS (4)
  - Hallucination [Recovering/Resolving]
  - Metastases to liver [Unknown]
  - Malignant neoplasm progression [Unknown]
  - Disorganised speech [Recovering/Resolving]

NARRATIVE: CASE EVENT DATE: 20250101
